FAERS Safety Report 16615075 (Version 1)
Quarter: 2019Q3

REPORT INFORMATION
  Report Type: Spontaneous
  Country: US (occurrence: US)
  Receive Date: 20190610
  Receipt Date: 20190610
  Transmission Date: 20191004
  Serious: No
  Sender: FDA-Public Use
  Company Number: None

PATIENT

DRUGS (1)
  1. OCTREOTIDE VIAL 100MCG/ML [Suspect]
     Active Substance: OCTREOTIDE
     Indication: WHIPPLE^S DISEASE
     Dosage: ?          OTHER STRENGTH:100 UG/ML;?
     Dates: start: 201905

REACTIONS (4)
  - Incorrect dose administered [None]
  - Nausea [None]
  - Fatigue [None]
  - Confusional state [None]

NARRATIVE: CASE EVENT DATE: 20190609
